FAERS Safety Report 24898534 (Version 2)
Quarter: 2025Q3

REPORT INFORMATION
  Report Type: Spontaneous
  Country: EU (occurrence: EU)
  Receive Date: 20250129
  Receipt Date: 20250716
  Transmission Date: 20251020
  Serious: Yes (Death)
  Sender: ROCHE
  Company Number: EU-002147023-NVSC2025NL008327

PATIENT
  Sex: Male

DRUGS (7)
  1. OMALIZUMAB [Suspect]
     Active Substance: OMALIZUMAB
     Indication: Product used for unknown indication
     Dosage: MATERNAL EXPOSURE DURING PREGNANCY: 2 DOSAGE FORM, Q4W (2 INJECTIES (PER STUK 150MG) PER 4 WEKEN)
     Route: 064
     Dates: start: 20240401
  2. METHADONE [Suspect]
     Active Substance: METHADONE HYDROCHLORIDE
     Indication: Product used for unknown indication
     Dosage: MATERNAL EXPOSURE DURING PREGNANCY: 5 MG, QD (1 TABLET ONCE A DAY)
     Route: 064
     Dates: start: 20220201
  3. BUPRENORPHINE [Suspect]
     Active Substance: BUPRENORPHINE
     Indication: Product used for unknown indication
     Dosage: MATERNAL EXPOSURE DURING PREGNANCY: 1 DOSAGE FORM (1 PATCH EVERY 5 DAYS)
     Route: 064
     Dates: start: 20190201
  4. OXYCODONE [Suspect]
     Active Substance: OXYCODONE
     Indication: Product used for unknown indication
     Dosage: MATERNAL EXPOSURE DURING PREGNANCY: 5 MG, Q4H (MAXIMUM 1 TABLET 6 TIMES A DAY)
     Route: 064
     Dates: start: 20240401
  5. MORPHINE [Suspect]
     Active Substance: MORPHINE
     Indication: Product used for unknown indication
     Dosage: MATERNAL EXPOSURE DURING PREGNANCY: 2 ML, Q4H (2 ML 6 TIMES A DAY)
     Route: 064
     Dates: start: 20240601
  6. LEVOCETIRIZINE [Suspect]
     Active Substance: LEVOCETIRIZINE
     Indication: Product used for unknown indication
     Dosage: MATERNAL EXPOSURE DURING PREGNANCY: 5 MG, Q6H (1 TABLET 4 TIMES A DAY)
     Route: 064
     Dates: start: 20180201
  7. MONTELUKAST [Suspect]
     Active Substance: MONTELUKAST
     Indication: Product used for unknown indication
     Dosage: MATERNAL EXPOSURE DURING PREGNANCY: 10 MG, QD (1 TABLET ONCE A DAY)
     Route: 064
     Dates: start: 20190201

REACTIONS (4)
  - Foetal death [Fatal]
  - Foetal vascular malperfusion [Fatal]
  - Foetal exposure during pregnancy [Unknown]
  - Placental disorder [Fatal]

NARRATIVE: CASE EVENT DATE: 20241119
